FAERS Safety Report 13778144 (Version 1)
Quarter: 2017Q3

REPORT INFORMATION
  Report Type: Spontaneous
  Country: US (occurrence: US)
  Receive Date: 20170721
  Receipt Date: 20170721
  Transmission Date: 20171127
  Serious: No
  Sender: FDA-Public Use
  Company Number: US-BRISTOL-MYERS SQUIBB COMPANY-BMS-2017-064798

PATIENT
  Sex: Female
  Weight: 78 kg

DRUGS (3)
  1. YERVOY [Suspect]
     Active Substance: IPILIMUMAB
     Indication: PRODUCT USED FOR UNKNOWN INDICATION
     Dosage: 804 MG, Q3WK
     Route: 042
     Dates: start: 20170203
  2. YERVOY [Suspect]
     Active Substance: IPILIMUMAB
     Indication: PRODUCT USED FOR UNKNOWN INDICATION
     Dosage: 804 MG, Q3WK
     Route: 042
     Dates: start: 20170309
  3. YERVOY [Suspect]
     Active Substance: IPILIMUMAB
     Indication: MALIGNANT MELANOMA
     Dosage: 804 MG, Q3WK
     Route: 042
     Dates: start: 20170113

REACTIONS (3)
  - Gait disturbance [Unknown]
  - Fatigue [Unknown]
  - Decreased appetite [Unknown]
